FAERS Safety Report 14858508 (Version 1)
Quarter: 2018Q2

REPORT INFORMATION
  Report Type: Spontaneous
  Country: US (occurrence: US)
  Receive Date: 20180508
  Receipt Date: 20180508
  Transmission Date: 20180711
  Serious: No
  Sender: FDA-Public Use
  Company Number: US-TEVA-823049ACC

PATIENT
  Sex: Female

DRUGS (1)
  1. BUMETANIDE. [Suspect]
     Active Substance: BUMETANIDE
     Indication: SWELLING
     Dates: start: 201704

REACTIONS (2)
  - Malaise [Unknown]
  - Alopecia [Unknown]

NARRATIVE: CASE EVENT DATE: 201704
